FAERS Safety Report 20082212 (Version 1)
Quarter: 2021Q4

REPORT INFORMATION
  Report Type: Spontaneous
  Country: US (occurrence: US)
  Receive Date: 20211117
  Receipt Date: 20211117
  Transmission Date: 20220303
  Serious: Yes (Other)
  Sender: FDA-Public Use
  Company Number: US-ORGANON-O2111USA001973

PATIENT
  Sex: Female

DRUGS (1)
  1. SINGULAIR [Suspect]
     Active Substance: MONTELUKAST SODIUM
     Dosage: UNK
     Route: 048

REACTIONS (8)
  - Spinal operation [Unknown]
  - Illness [Unknown]
  - Hyperacusis [Unknown]
  - Gait disturbance [Unknown]
  - Reading disorder [Unknown]
  - Drug hypersensitivity [Unknown]
  - Adverse event [Unknown]
  - Product availability issue [Unknown]
